FAERS Safety Report 17434628 (Version 2)
Quarter: 2023Q1

REPORT INFORMATION
  Report Type: Spontaneous
  Country: US (occurrence: US)
  Receive Date: 20200219
  Receipt Date: 20230105
  Transmission Date: 20230418
  Serious: Yes (Other)
  Sender: FDA-Public Use
  Company Number: US-JNJFOC-20200227440

PATIENT
  Age: 23 Year
  Sex: Male

DRUGS (10)
  1. RISPERDAL [Suspect]
     Active Substance: RISPERIDONE
     Indication: Autism spectrum disorder
     Route: 048
     Dates: start: 2004
  2. RISPERDAL [Suspect]
     Active Substance: RISPERIDONE
     Indication: Attention deficit hyperactivity disorder
     Route: 048
     Dates: start: 2009
  3. RISPERDAL [Suspect]
     Active Substance: RISPERIDONE
     Indication: Bipolar disorder
     Route: 048
     Dates: start: 2014
  4. RISPERDAL [Suspect]
     Active Substance: RISPERIDONE
     Dosage: 1 IN MORNING AND 2 AT NIGHT
     Route: 048
     Dates: start: 20140501
  5. RISPERDAL [Suspect]
     Active Substance: RISPERIDONE
     Dosage: 1 IN THE MORNING AND 2 AT NIGHT
     Route: 048
     Dates: start: 201408, end: 201410
  6. RISPERDAL [Suspect]
     Active Substance: RISPERIDONE
     Dosage: 1 IN MORNING AND 2 AT NIGHT
     Route: 048
     Dates: start: 201602, end: 201607
  7. RISPERDAL [Suspect]
     Active Substance: RISPERIDONE
     Dosage: HALF TABLET IN MORNING, ONE TABLET IN NOON AND HALF TABLET IN NIGHTTIME
     Route: 048
     Dates: start: 20160803
  8. RISPERDAL [Suspect]
     Active Substance: RISPERIDONE
     Route: 048
     Dates: start: 201611
  9. RISPERDAL [Suspect]
     Active Substance: RISPERIDONE
     Route: 048
     Dates: start: 201612
  10. RISPERIDONE [Suspect]
     Active Substance: RISPERIDONE
     Indication: Product used for unknown indication
     Route: 048

REACTIONS (4)
  - Weight increased [Unknown]
  - Gynaecomastia [Unknown]
  - Emotional disorder [Unknown]
  - Off label use [Unknown]

NARRATIVE: CASE EVENT DATE: 20160201
